FAERS Safety Report 9493824 (Version 2)
Quarter: 2014Q1

REPORT INFORMATION
  Report Type: Spontaneous
  Country: FI (occurrence: FI)
  Receive Date: 20130902
  Receipt Date: 20140120
  Transmission Date: 20141002
  Serious: Yes (Other)
  Sender: FDA-Public Use
  Company Number: PHHY2013FI093608

PATIENT
  Age: 75 Year
  Sex: Male

DRUGS (17)
  1. ZOMETA [Suspect]
     Indication: PLASMA CELL MYELOMA
     Dosage: UNK
  2. ZOMETA [Suspect]
     Dosage: UNK
     Dates: start: 20130814
  3. PREDNISONE [Concomitant]
     Dosage: 40 MG, PER DAY
     Dates: start: 2011
  4. PREDNISONE [Concomitant]
     Dosage: UNK
     Dates: start: 20130418
  5. BORTEZOMIB [Concomitant]
     Indication: PLASMA CELL MYELOMA
     Dosage: UNK UKN, UNK
  6. DEXAMETHASONE [Concomitant]
     Indication: PLASMA CELL MYELOMA
     Dosage: UNK UKN, UNK
  7. APURIN [Concomitant]
     Dosage: 100 MG, UNK
     Route: 048
     Dates: start: 2011
  8. CALCICHEW D3 FORTE [Concomitant]
     Dosage: 1 DF, BID
     Route: 048
     Dates: start: 2011
  9. EMGESAN [Concomitant]
     Dosage: 250 MG, UNK
  10. FELODIPIN [Concomitant]
     Dosage: 5 MG, UNK
     Route: 048
     Dates: start: 2012
  11. LYRICA [Concomitant]
     Dosage: 25 MG, (1 CAPX2) (50 MG PER DAY)
     Route: 048
  12. METOHEXAL [Concomitant]
     Dosage: 1 DF, UNK
     Route: 048
  13. OMEPRAZOL [Concomitant]
     Dosage: 20 MG, UNK
     Route: 048
  14. TAMSUMIN [Concomitant]
     Dosage: 0.4 MG, UNK
     Dates: start: 2012
  15. PRIMPERAN [Concomitant]
     Indication: NAUSEA
     Dosage: 10 MG, UNK
  16. ONDANSETRON [Concomitant]
     Indication: NAUSEA
     Dosage: 8 MG, UNK
  17. COTRIM FORTE [Concomitant]
     Indication: PROPHYLAXIS
     Dosage: ON 3 DAYS PER WEEK
     Route: 048
     Dates: start: 2011

REACTIONS (12)
  - Plasma cell myeloma [Unknown]
  - Malignant neoplasm progression [Unknown]
  - Blood glucose abnormal [Unknown]
  - Skin atrophy [Unknown]
  - Fungal infection [Unknown]
  - Dyslipidaemia [Unknown]
  - Rash vesicular [Not Recovered/Not Resolved]
  - Skin lesion [Not Recovered/Not Resolved]
  - Skin reaction [Not Recovered/Not Resolved]
  - Rash [Not Recovered/Not Resolved]
  - Thrombocytopenia [Unknown]
  - Glomerular filtration rate decreased [Unknown]
